FAERS Safety Report 11177033 (Version 1)
Quarter: 2015Q2

REPORT INFORMATION
  Report Type: Spontaneous
  Country: US (occurrence: US)
  Receive Date: 20150610
  Receipt Date: 20150610
  Transmission Date: 20150821
  Serious: No
  Sender: FDA-Public Use
  Company Number: US-TEVA-545998USA

PATIENT
  Sex: Female

DRUGS (1)
  1. QUININE SULFATE. [Suspect]
     Active Substance: QUININE SULFATE
     Indication: MUSCLE SPASMS
     Dosage: 20 MILLIGRAM DAILY;
     Dates: start: 1999

REACTIONS (2)
  - Drug hypersensitivity [Unknown]
  - Vomiting [Unknown]
